FAERS Safety Report 5585295-3 (Version None)
Quarter: 2008Q1

REPORT INFORMATION
  Report Type: 
  Country: None (occurrence: None)
  Receive Date: 20080109
  Receipt Date: 20080108
  Transmission Date: 20080703
  Serious: Yes (Other)
  Sender: FDA-Public Use
  Company Number: IE-BAYER-200710986BNE

PATIENT
  Age: 63 Year
  Sex: Male

DRUGS (2)
  1. SORAFENIB [Suspect]
     Dosage: TOTAL DAILY DOSE: 400 MG  UNIT DOSE: 200 MG
     Dates: end: 20070914
  2. SORAFENIB [Suspect]
     Dosage: TOTAL DAILY DOSE: 800 MG  UNIT DOSE: 200 MG

REACTIONS (6)
  - ADVERSE DRUG REACTION [None]
  - ANXIETY [None]
  - DEPRESSION [None]
  - ELECTROCARDIOGRAM T WAVE INVERSION [None]
  - HEADACHE [None]
  - HYPERTENSION [None]
